FAERS Safety Report 20255448 (Version 1)
Quarter: 2021Q4

REPORT INFORMATION
  Report Type: Spontaneous
  Country: US (occurrence: None)
  Receive Date: 20211229
  Receipt Date: 20211229
  Transmission Date: 20220303
  Serious: Yes (Other)
  Sender: FDA-Public Use
  Company Number: None

PATIENT
  Sex: Female
  Weight: 54 kg

DRUGS (1)
  1. ANNOVERA [Suspect]
     Active Substance: ETHINYL ESTRADIOL\SEGESTERONE ACETATE
     Indication: Contraception
     Dates: start: 20210909, end: 20211220

REACTIONS (6)
  - Urethral pain [None]
  - Vulvovaginal pain [None]
  - Vulvovaginal discomfort [None]
  - Urethritis noninfective [None]
  - Inflammation [None]
  - Fungal infection [None]
